FAERS Safety Report 7569622-3 (Version None)
Quarter: 2011Q2

REPORT INFORMATION
  Report Type: 
  Country: None (occurrence: None)
  Receive Date: 20110621
  Receipt Date: 20110621
  Transmission Date: 20111010
  Serious: No
  Sender: FDA-Public Use
  Company Number: None

PATIENT
  Age: 45 Year
  Sex: Female
  Weight: 86.1834 kg

DRUGS (2)
  1. CIPROFLOXACIN HCL [Suspect]
     Indication: URINARY TRACT INFECTION
     Dosage: 500MG BID ORAL
     Route: 048
     Dates: start: 20110607
  2. CIPROFLOXACIN HCL [Suspect]
     Indication: URINARY TRACT INFECTION
     Dosage: 500MG BID ORAL
     Route: 048
     Dates: start: 20110608

REACTIONS (4)
  - NECK PAIN [None]
  - MUSCULOSKELETAL STIFFNESS [None]
  - RETROPERITONEAL HAEMORRHAGE [None]
  - DYSTONIA [None]
